FAERS Safety Report 8117322-3 (Version None)
Quarter: 2012Q1

REPORT INFORMATION
  Report Type: 
  Country: None (occurrence: None)
  Receive Date: 20120206
  Receipt Date: 20120126
  Transmission Date: 20120608
  Serious: Yes (Other)
  Sender: FDA-Public Use
  Company Number: DE-B.I. PHARMACEUTICALS,INC./RIDGEFIELD-2012-DE-00180DE

PATIENT
  Sex: Female
  Weight: 66 kg

DRUGS (4)
  1. PRADAXA [Concomitant]
     Dosage: 300 MG
     Route: 048
  2. PRADAXA [Suspect]
     Indication: DEEP VEIN THROMBOSIS
     Dosage: 300 MG
     Route: 048
  3. CARBOPLATIN [Suspect]
     Indication: OVARIAN CANCER
     Dosage: 375 MG
     Route: 042
     Dates: start: 20111108, end: 20111108
  4. TAXOL [Suspect]
     Indication: OVARIAN CANCER
     Dosage: 310 NR
     Route: 042
     Dates: start: 20111108, end: 20111108

REACTIONS (1)
  - THROMBOCYTOPENIA [None]
